FAERS Safety Report 8281055 (Version 4)
Quarter: 2012Q4

REPORT INFORMATION
  Report Type: 
  Country: US (occurrence: US)
  Receive Date: 20111208
  Receipt Date: 20121212
  Transmission Date: 20130627
  Serious: Yes (Hospitalization, Other)
  Sender: FDA-Public Use
  Company Number: US-ROCHE-791989

PATIENT
  Age: 60 None
  Sex: Female
  Weight: 70.37 kg

DRUGS (2)
  1. ACCUTANE [Suspect]
     Indication: ACNE
     Route: 065
     Dates: start: 1983, end: 1984
  2. ACCUTANE [Suspect]
     Route: 048
     Dates: start: 19841008, end: 19850130

REACTIONS (12)
  - Crohn^s disease [Unknown]
  - Colitis ulcerative [Unknown]
  - Inflammatory bowel disease [Unknown]
  - Osteoporosis [Unknown]
  - Emotional distress [Unknown]
  - Depression [Unknown]
  - Colonic fistula [Unknown]
  - Osteoarthritis [Unknown]
  - Arthritis [Unknown]
  - Irritable bowel syndrome [Unknown]
  - Blood triglycerides increased [Unknown]
  - Dry skin [Unknown]
